FAERS Safety Report 13679000 (Version 4)
Quarter: 2018Q1

REPORT INFORMATION
  Report Type: Spontaneous
  Country: JP (occurrence: JP)
  Receive Date: 20170622
  Receipt Date: 20180309
  Transmission Date: 20180508
  Serious: Yes (Hospitalization, Other)
  Sender: FDA-Public Use
  Company Number: JP-ACTELION-A-CH2017-155297

PATIENT
  Age: 72 Year
  Sex: Female

DRUGS (13)
  1. TRACLEER [Suspect]
     Active Substance: BOSENTAN
     Indication: SCLERODERMA ASSOCIATED DIGITAL ULCER
     Dosage: 31.25 MG, BID
     Route: 048
     Dates: start: 20170315, end: 20170419
  2. PREDNISOLONE. [Concomitant]
     Active Substance: PREDNISOLONE
  3. CARELOAD [Suspect]
     Active Substance: BERAPROST SODIUM
     Indication: PRODUCT USED FOR UNKNOWN INDICATION
     Route: 048
  4. LIMAPROST [Concomitant]
     Active Substance: LIMAPROST
  5. TRACLEER [Suspect]
     Active Substance: BOSENTAN
     Dosage: 62.5 MG, BID
     Route: 048
     Dates: start: 20161104, end: 20161111
  6. LIPLE [Suspect]
     Active Substance: ALPROSTADIL
     Indication: PRODUCT USED FOR UNKNOWN INDICATION
     Dosage: UNK
     Route: 065
     Dates: end: 201705
  7. ACECOL [Concomitant]
     Active Substance: TEMOCAPRIL HYDROCHLORIDE
  8. METHYCOOL [Concomitant]
     Active Substance: METHYLCOBALAMIN
  9. METALCAPTASE [Concomitant]
     Active Substance: PENICILLAMINE
  10. EDIROL [Concomitant]
     Active Substance: ELDECALCITOL
  11. TAPIZOL [Concomitant]
     Active Substance: LANSOPRAZOLE
  12. XYZAL [Concomitant]
     Active Substance: LEVOCETIRIZINE DIHYDROCHLORIDE
  13. AMLODIN [Concomitant]
     Active Substance: AMLODIPINE BESYLATE

REACTIONS (7)
  - Dyspnoea [Recovered/Resolved]
  - Dizziness [Recovered/Resolved]
  - Face oedema [Recovered/Resolved]
  - Brain natriuretic peptide increased [Unknown]
  - Cardiac failure [Recovered/Resolved]
  - Cardiomegaly [Recovered/Resolved]
  - Pleural effusion [Recovered/Resolved]

NARRATIVE: CASE EVENT DATE: 20161111
